FAERS Safety Report 19733021 (Version 1)
Quarter: 2021Q3

REPORT INFORMATION
  Report Type: Spontaneous
  Country: US (occurrence: US)
  Receive Date: 20210822
  Receipt Date: 20210822
  Transmission Date: 20211014
  Serious: Yes (Other)
  Sender: FDA-Public Use
  Company Number: None

PATIENT
  Age: 73 Year
  Sex: Female
  Weight: 51.75 kg

DRUGS (4)
  1. ESTRACE [Concomitant]
     Active Substance: ESTRADIOL
  2. RECLAST [Suspect]
     Active Substance: ZOLEDRONIC ACID
     Indication: OSTEOPENIA
     Dates: start: 20210708, end: 20210708
  3. VITAMIN D [Concomitant]
     Active Substance: VITAMIN D NOS
  4. HYDROXYCHLOROQUINE [Concomitant]
     Active Substance: HYDROXYCHLOROQUINE

REACTIONS (15)
  - Headache [None]
  - Hypophagia [None]
  - Ageusia [None]
  - Taste disorder [None]
  - Somnolence [None]
  - Dyspepsia [None]
  - Periorbital swelling [None]
  - Paranasal sinus discomfort [None]
  - Dizziness [None]
  - Eye pain [None]
  - Asthenia [None]
  - Diarrhoea [None]
  - Abdominal pain upper [None]
  - Abdominal discomfort [None]
  - Vomiting [None]

NARRATIVE: CASE EVENT DATE: 20210708
